FAERS Safety Report 21605458 (Version 1)
Quarter: 2022Q4

REPORT INFORMATION
  Report Type: Spontaneous
  Country: GB (occurrence: GB)
  Receive Date: 20221116
  Receipt Date: 20221116
  Transmission Date: 20230113
  Serious: Yes (Other)
  Sender: FDA-Public Use
  Company Number: GB-PFM-2022-08175

PATIENT
  Age: 72 Year
  Sex: Female

DRUGS (1)
  1. BRAFTOVI [Suspect]
     Active Substance: ENCORAFENIB
     Indication: Colorectal cancer
     Dosage: UNK,ONCE PER DAY
     Route: 065

REACTIONS (2)
  - Grip strength decreased [Recovering/Resolving]
  - Tendonitis [Recovering/Resolving]
